FAERS Safety Report 12685273 (Version 1)
Quarter: 2016Q3

REPORT INFORMATION
  Report Type: Spontaneous
  Country: CH (occurrence: FR)
  Receive Date: 20160825
  Receipt Date: 20160825
  Transmission Date: 20161109
  Serious: Yes (Other)
  Sender: FDA-Public Use
  Company Number: PHHY2016FR113700

PATIENT
  Age: 15 Year
  Sex: Female

DRUGS (1)
  1. SERTRALINE [Suspect]
     Active Substance: SERTRALINE HYDROCHLORIDE
     Indication: DEPRESSION
     Dosage: 150 MG, QD
     Route: 065
     Dates: start: 20160814, end: 20160817

REACTIONS (4)
  - Cyanosis [Unknown]
  - Off label use [Unknown]
  - Wrong technique in product usage process [Unknown]
  - Lip oedema [Unknown]

NARRATIVE: CASE EVENT DATE: 20160814
